FAERS Safety Report 23881851 (Version 2)
Quarter: 2024Q3

REPORT INFORMATION
  Report Type: Other
  Country: US (occurrence: US)
  Receive Date: 20240521
  Receipt Date: 20240830
  Transmission Date: 20241016
  Serious: Yes (Other)
  Sender: SIGA TECHNOLOGIES
  Company Number: US-SIGA Technologies, Inc.-2157273

PATIENT
  Age: 30 Year
  Sex: Male

DRUGS (3)
  1. TPOXX [Suspect]
     Active Substance: TECOVIRIMAT
     Indication: Monkeypox
     Route: 048
  2. BRINCIDOFOVIR [Concomitant]
     Active Substance: BRINCIDOFOVIR
  3. DIACEREIN [Concomitant]
     Active Substance: DIACEREIN

REACTIONS (1)
  - Drug resistance [Recovering/Resolving]
